FAERS Safety Report 9439586 (Version 2)
Quarter: 2013Q3

REPORT INFORMATION
  Report Type: Spontaneous
  Country: US (occurrence: US)
  Receive Date: 20130805
  Receipt Date: 20130909
  Transmission Date: 20140515
  Serious: Yes (Other)
  Sender: FDA-Public Use
  Company Number: US-JNJFOC-20130715025

PATIENT
  Sex: Female

DRUGS (4)
  1. TYLENOL UNSPECIFIED [Suspect]
     Route: 065
  2. TYLENOL UNSPECIFIED [Suspect]
     Indication: PRODUCT USED FOR UNKNOWN INDICATION
     Route: 065
  3. LYRICA [Suspect]
     Indication: PRODUCT USED FOR UNKNOWN INDICATION
     Route: 065
  4. NEURONTIN [Suspect]
     Indication: PRODUCT USED FOR UNKNOWN INDICATION
     Route: 065

REACTIONS (14)
  - Nerve injury [Unknown]
  - Abscess [Unknown]
  - Diverticulitis [Unknown]
  - Vulvovaginal pain [Unknown]
  - Irritable bowel syndrome [Unknown]
  - Anxiety [Unknown]
  - Depression [Unknown]
  - Mental impairment [Unknown]
  - Somnolence [Unknown]
  - Pain [Unknown]
  - Stress [Unknown]
  - Back pain [Unknown]
  - Constipation [Unknown]
  - Gastric disorder [Unknown]
